FAERS Safety Report 5679573-7 (Version None)
Quarter: 2008Q1

REPORT INFORMATION
  Report Type: 
  Country: None (occurrence: None)
  Receive Date: 20080325
  Receipt Date: 20080317
  Transmission Date: 20080703
  Serious: Yes (Other)
  Sender: FDA-Public Use
  Company Number: FR-PFIZER INC-2008024900

PATIENT
  Age: 48 Year
  Sex: Male

DRUGS (2)
  1. TAHOR [Suspect]
     Indication: HYPERCHOLESTEROLAEMIA
  2. COVERSYL [Concomitant]

REACTIONS (2)
  - RASH GENERALISED [None]
  - RASH PUSTULAR [None]
